FAERS Safety Report 9998264 (Version 2)
Quarter: 2014Q1

REPORT INFORMATION
  Report Type: Spontaneous
  Country: US (occurrence: US)
  Receive Date: 20140311
  Receipt Date: 20140328
  Transmission Date: 20141002
  Serious: Yes (Death)
  Sender: FDA-Public Use
  Company Number: US-ROCHE-1363724

PATIENT
  Age: 49 Year
  Sex: Female

DRUGS (3)
  1. AVASTIN [Suspect]
     Indication: BRAIN NEOPLASM
     Route: 065
     Dates: end: 201402
  2. KEPPRA [Concomitant]
     Route: 065
     Dates: start: 2008
  3. TEMODAR [Concomitant]
     Route: 065
     Dates: start: 201301

REACTIONS (1)
  - Brain neoplasm [Fatal]
